FAERS Safety Report 9435394 (Version 2)
Quarter: 2013Q3

REPORT INFORMATION
  Report Type: Report from Study
  Country: CL (occurrence: CL)
  Receive Date: 20130801
  Receipt Date: 20130807
  Transmission Date: 20140515
  Serious: Yes (Death)
  Sender: FDA-Public Use
  Company Number: CL-GLAXOSMITHKLINE-A1035726A

PATIENT
  Age: 21 Year
  Sex: Female
  Weight: 70.2 kg

DRUGS (2)
  1. NELARABINE [Suspect]
     Indication: LYMPHOCYTIC LEUKAEMIA
     Route: 042
     Dates: start: 20130709, end: 20130710
  2. STEROID [Concomitant]
     Indication: SUPERIOR VENA CAVA SYNDROME

REACTIONS (1)
  - Superior vena cava syndrome [Fatal]
